FAERS Safety Report 21007840 (Version 2)
Quarter: 2022Q3

REPORT INFORMATION
  Report Type: Spontaneous
  Country: US (occurrence: US)
  Receive Date: 20220627
  Receipt Date: 20220808
  Transmission Date: 20221026
  Serious: No
  Sender: FDA-Public Use
  Company Number: US-TOLMAR, INC.-22US034992

PATIENT
  Age: 68 Year
  Sex: Male

DRUGS (1)
  1. ELIGARD [Suspect]
     Active Substance: LEUPROLIDE ACETATE
     Indication: Prostate cancer
     Dosage: 7.5 MILLIGRAM, Q 1 MONTH
     Dates: start: 20220531

REACTIONS (4)
  - Wrong technique in product usage process [Unknown]
  - Intercepted product preparation error [Unknown]
  - Syringe issue [Unknown]
  - Product packaging quantity issue [Unknown]

NARRATIVE: CASE EVENT DATE: 20220531
